FAERS Safety Report 7097529-7 (Version None)
Quarter: 2010Q4

REPORT INFORMATION
  Report Type: 
  Country: None (occurrence: None)
  Receive Date: 20101111
  Receipt Date: 20101101
  Transmission Date: 20110411
  Serious: Yes (Hospitalization, Disabling)
  Sender: FDA-Public Use
  Company Number: US-MERCK-1010USA02299

PATIENT
  Age: 46 Year
  Sex: Female

DRUGS (7)
  1. SIMVASTATIN [Suspect]
     Route: 048
     Dates: start: 20090305, end: 20100105
  2. SIMVASTATIN [Suspect]
     Indication: BLOOD CHOLESTEROL INCREASED
     Route: 048
     Dates: start: 20070101, end: 20091216
  3. METFORMIN [Concomitant]
     Route: 048
  4. NOVOLIN 70/30 [Concomitant]
     Route: 065
  5. PEPCID [Concomitant]
     Route: 048
  6. METOPROLOL [Concomitant]
     Route: 065
  7. OMEPRAZOLE [Concomitant]
     Route: 065

REACTIONS (4)
  - CHEST DISCOMFORT [None]
  - CHEST PAIN [None]
  - MYALGIA [None]
  - MYOSITIS [None]
